FAERS Safety Report 8838751 (Version 3)
Quarter: 2013Q4

REPORT INFORMATION
  Report Type: Spontaneous
  Country: US (occurrence: US)
  Receive Date: 20121012
  Receipt Date: 20131111
  Transmission Date: 20140711
  Serious: Yes (Hospitalization, Disabling, Other)
  Sender: FDA-Public Use
  Company Number: US-009507513-1210USA003209

PATIENT
  Sex: Female
  Weight: 63.49 kg

DRUGS (9)
  1. FOSAMAX [Suspect]
     Indication: OSTEOPOROSIS
     Dosage: 70 MG, QW
     Route: 048
     Dates: start: 20040825, end: 200808
  2. ALENDRONATE SODIUM [Suspect]
     Indication: OSTEOPOROSIS
     Dosage: 70 MG, QW
     Route: 048
     Dates: start: 200808, end: 20101008
  3. OCUVITE [Concomitant]
     Dosage: UNK, QAM
     Route: 048
     Dates: start: 1980
  4. PHARMANEX LIFE PAK NANO [Concomitant]
     Dosage: UNK
     Dates: start: 2006
  5. CALCIUM (UNSPECIFIED) [Concomitant]
     Dosage: 1200 MG, QD
     Dates: start: 1990
  6. PLAVIX [Concomitant]
     Indication: THROMBOSIS
     Dosage: 37.5 MG, QPM
     Route: 048
     Dates: start: 199412
  7. PAROXETINE [Concomitant]
     Indication: DEPRESSION
     Dosage: UNK
     Dates: start: 1998
  8. VESICARE [Concomitant]
     Indication: HYPERTONIC BLADDER
     Dosage: 5 MG, QPM
     Route: 048
     Dates: start: 2001
  9. RESTASIS [Concomitant]
     Indication: DRY EYE
     Dosage: UNK UNK, BID
     Route: 047
     Dates: start: 2000

REACTIONS (28)
  - Intramedullary rod insertion [Unknown]
  - Femur fracture [Not Recovered/Not Resolved]
  - Femur fracture [Not Recovered/Not Resolved]
  - Upper limb fracture [Unknown]
  - Osteoporosis [Not Recovered/Not Resolved]
  - Spinal fusion surgery [Unknown]
  - Hypoacusis [Unknown]
  - Femur fracture [Not Recovered/Not Resolved]
  - Fall [Unknown]
  - Vitamin D deficiency [Unknown]
  - Automatic bladder [Unknown]
  - Anaemia postoperative [Unknown]
  - Antiphospholipid antibodies positive [Unknown]
  - Muscular weakness [Not Recovered/Not Resolved]
  - Hypoaesthesia [Unknown]
  - Cataract operation [Unknown]
  - Glaucoma [Unknown]
  - Drug intolerance [Unknown]
  - Fall [Unknown]
  - Dyspnoea [Unknown]
  - Joint dislocation [Unknown]
  - Limb discomfort [Unknown]
  - Gastritis [Unknown]
  - Gastrooesophageal reflux disease [Unknown]
  - Pruritus [Unknown]
  - Nausea [Unknown]
  - Flatulence [Unknown]
  - Constipation [Unknown]
